FAERS Safety Report 11398955 (Version 1)
Quarter: 2015Q3

REPORT INFORMATION
  Report Type: Spontaneous
  Country: US (occurrence: None)
  Receive Date: 20150818
  Receipt Date: 20150818
  Transmission Date: 20151125
  Serious: Yes (Death)
  Sender: FDA-Public Use
  Company Number: None

PATIENT
  Age: 10 Year
  Sex: Male

DRUGS (1)
  1. ONDANSETRON [Suspect]
     Active Substance: ONDANSETRON
     Indication: CHOLECYSTITIS
     Route: 042
     Dates: start: 20121213, end: 20121214

REACTIONS (5)
  - Pulseless electrical activity [None]
  - Ventricular tachycardia [None]
  - Hypopnoea [None]
  - Tachyarrhythmia [None]
  - Unresponsive to stimuli [None]

NARRATIVE: CASE EVENT DATE: 20121214
